FAERS Safety Report 5074244-2 (Version None)
Quarter: 2006Q3

REPORT INFORMATION
  Report Type: 
  Country: None (occurrence: None)
  Receive Date: 20060803
  Receipt Date: 20060609
  Transmission Date: 20061208
  Serious: No
  Sender: FDA-Public Use
  Company Number: DE200607003937

PATIENT
  Age: 63 Year
  Sex: Female

DRUGS (1)
  1. ZYPREXA [Suspect]

REACTIONS (1)
  - MENORRHAGIA [None]
